FAERS Safety Report 14039910 (Version 1)
Quarter: 2017Q4

REPORT INFORMATION
  Report Type: Spontaneous
  Country: CA (occurrence: CA)
  Receive Date: 20171004
  Receipt Date: 20171004
  Transmission Date: 20180321
  Serious: Yes (Life-Threatening)
  Sender: FDA-Public Use
  Company Number: PHHY2017CA144660

PATIENT
  Age: 69 Year
  Sex: Male

DRUGS (3)
  1. HEPARIN [Suspect]
     Active Substance: HEPARIN SODIUM
     Indication: CORONARY ARTERY DISEASE
     Route: 065
  2. ASPIRIN. [Concomitant]
     Active Substance: ASPIRIN
     Indication: CORONARY ARTERY DISEASE
     Route: 065
  3. NITROGLYCERIN. [Concomitant]
     Active Substance: NITROGLYCERIN
     Indication: INTRA-AORTIC BALLOON PLACEMENT
     Route: 065

REACTIONS (6)
  - Mechanical ventilation complication [Unknown]
  - Hypotension [Unknown]
  - Tracheal haemorrhage [Unknown]
  - Hypoventilation [Unknown]
  - Haemoptysis [Recovered/Resolved]
  - Haemodynamic instability [Unknown]
